FAERS Safety Report 7691134-7 (Version None)
Quarter: 2011Q3

REPORT INFORMATION
  Report Type: 
  Country: None (occurrence: None)
  Receive Date: 20110815
  Receipt Date: 20110803
  Transmission Date: 20111222
  Serious: Yes (Hospitalization, Disabling, Other)
  Sender: FDA-Public Use
  Company Number: 2011SP014788

PATIENT
  Age: 34 Year
  Sex: Female
  Weight: 77.1115 kg

DRUGS (2)
  1. NARDIL [Concomitant]
     Indication: DEPRESSION
  2. NUVARING [Suspect]
     Indication: CONTRACEPTION
     Dates: start: 20080101, end: 20090401

REACTIONS (12)
  - TREMOR [None]
  - SUICIDAL IDEATION [None]
  - ANXIETY [None]
  - MENINGITIS VIRAL [None]
  - TRANSVERSE SINUS THROMBOSIS [None]
  - URINARY TRACT INFECTION [None]
  - APHASIA [None]
  - HYPOTENSION [None]
  - ENCEPHALITIS [None]
  - CEREBRAL VENOUS THROMBOSIS [None]
  - AMNESIA [None]
  - HEADACHE [None]
